FAERS Safety Report 8073255-2 (Version None)
Quarter: 2012Q1

REPORT INFORMATION
  Report Type: 
  Country: None (occurrence: None)
  Receive Date: 20120126
  Receipt Date: 20120119
  Transmission Date: 20120608
  Serious: Yes (Other)
  Sender: FDA-Public Use
  Company Number: PHEH2008US04335

PATIENT
  Sex: Female

DRUGS (14)
  1. ARIMIDEX [Concomitant]
  2. VITAMIN E [Concomitant]
  3. CHEMOTHERAPEUTICS [Concomitant]
  4. CEPHALEXIN [Concomitant]
  5. TAMOXIFEN CITRATE [Concomitant]
  6. FEMARA [Concomitant]
  7. FOSAMAX [Suspect]
  8. ADRIAMYCIN PFS [Concomitant]
  9. AMOXICILLIN [Concomitant]
     Dosage: 500 MG, UNK
  10. RADIATION THERAPY [Concomitant]
  11. ACETAMINOPHEN [Concomitant]
  12. CYTOXAN [Concomitant]
  13. AREDIA [Suspect]
  14. AROMASIN [Concomitant]

REACTIONS (27)
  - OSTEONECROSIS OF JAW [None]
  - DISABILITY [None]
  - DENTURE WEARER [None]
  - BULLOUS LUNG DISEASE [None]
  - METASTASES TO LUNG [None]
  - NEUROPATHY PERIPHERAL [None]
  - INJURY [None]
  - ANHEDONIA [None]
  - EXOSTOSIS [None]
  - ONYCHOMYCOSIS [None]
  - PAIN [None]
  - ANXIETY [None]
  - ARTHRITIS [None]
  - METASTASES TO LIVER [None]
  - INGROWING NAIL [None]
  - ONYCHOGRYPHOSIS [None]
  - VISION BLURRED [None]
  - PLEURAL FIBROSIS [None]
  - EFFUSION [None]
  - DIABETES MELLITUS [None]
  - BREAST CANCER METASTATIC [None]
  - HYPOAESTHESIA [None]
  - HYPERCHOLESTEROLAEMIA [None]
  - OROPHARYNGEAL PAIN [None]
  - KIDNEY INFECTION [None]
  - BREAST TENDERNESS [None]
  - METASTASES TO BONE [None]
